FAERS Safety Report 6401185-8 (Version None)
Quarter: 2009Q4

REPORT INFORMATION
  Report Type: 
  Country: None (occurrence: None)
  Receive Date: 20091015
  Receipt Date: 20091007
  Transmission Date: 20100525
  Serious: Yes (Congenital Anomaly)
  Sender: FDA-Public Use
  Company Number: BE-BAYER-200935383GPV

PATIENT
  Sex: Male
  Weight: 3.2 kg

DRUGS (1)
  1. BETAFERON [Suspect]
     Dosage: DRUG EXPOSURE VIA FATHER

REACTIONS (6)
  - AORTIC DISORDER [None]
  - CONGENITAL HYDROCEPHALUS [None]
  - MULTIPLE CONGENITAL ABNORMALITIES [None]
  - PATERNAL DRUGS AFFECTING FOETUS [None]
  - RENAL DISORDER [None]
  - TALIPES [None]
